FAERS Safety Report 19676046 (Version 1)
Quarter: 2021Q3

REPORT INFORMATION
  Report Type: Spontaneous
  Country: GB (occurrence: GB)
  Receive Date: 20210809
  Receipt Date: 20210809
  Transmission Date: 20211014
  Serious: Yes (Other)
  Sender: FDA-Public Use
  Company Number: GB-PFIZER INC-2021649833

PATIENT
  Sex: Female

DRUGS (1)
  1. SOLU?MEDRONE [Suspect]
     Active Substance: METHYLPREDNISOLONE SODIUM SUCCINATE
     Indication: BRAIN INJURY
     Dosage: 500 MG [ONCE A WEEK]

REACTIONS (2)
  - Blindness [Unknown]
  - Product dose omission issue [Unknown]
